FAERS Safety Report 24787284 (Version 1)
Quarter: 2024Q4

REPORT INFORMATION
  Report Type: Report from Study
  Country: CA (occurrence: CA)
  Receive Date: 20241230
  Receipt Date: 20241230
  Transmission Date: 20250115
  Serious: Yes (Other)
  Sender: TAKEDA
  Company Number: CA-TAKEDA-2024TUS086058

PATIENT
  Age: 38 Year
  Sex: Male

DRUGS (3)
  1. VEDOLIZUMAB [Suspect]
     Active Substance: VEDOLIZUMAB
     Indication: Crohn^s disease
     Dosage: 300 MILLIGRAM
  2. VEDOLIZUMAB [Suspect]
     Active Substance: VEDOLIZUMAB
     Dosage: 300 MILLIGRAM
  3. MESALAMINE [Concomitant]
     Active Substance: MESALAMINE
     Dosage: UNK

REACTIONS (21)
  - Crohn^s disease [Unknown]
  - Sinus pain [Not Recovered/Not Resolved]
  - Rhinalgia [Not Recovered/Not Resolved]
  - Procedural haemorrhage [Unknown]
  - Viral sinusitis [Not Recovered/Not Resolved]
  - Oesophagitis [Unknown]
  - Asthenia [Unknown]
  - Insomnia [Not Recovered/Not Resolved]
  - Malaise [Unknown]
  - Diarrhoea [Unknown]
  - Masticatory pain [Unknown]
  - Odynophagia [Unknown]
  - Mononucleosis heterophile test positive [Unknown]
  - Gastrointestinal inflammation [Not Recovered/Not Resolved]
  - Gastritis [Unknown]
  - Gastric polyps [Unknown]
  - Hiatus hernia [Unknown]
  - Viral infection [Unknown]
  - Decreased appetite [Unknown]
  - Night sweats [Not Recovered/Not Resolved]
  - Nasopharyngitis [Unknown]

NARRATIVE: CASE EVENT DATE: 20240815
